FAERS Safety Report 11683089 (Version 2)
Quarter: 2015Q4

REPORT INFORMATION
  Report Type: Report from Study
  Country: DE (occurrence: DE)
  Receive Date: 20151029
  Receipt Date: 20151112
  Transmission Date: 20160304
  Serious: No
  Sender: FDA-Public Use
  Company Number: DE-009507513-1507DEU011112

PATIENT
  Age: 22 Year
  Sex: Male
  Weight: 77 kg

DRUGS (1)
  1. GRAZAX [Suspect]
     Active Substance: PHLEUM PRATENSE POLLEN
     Indication: RHINITIS
     Dosage: 75000 SQ-T, UNKNOWN
     Route: 065
     Dates: start: 20150706, end: 20150716

REACTIONS (12)
  - Throat irritation [Recovered/Resolved]
  - Dyspepsia [Recovered/Resolved]
  - Stomatitis [Recovered/Resolved]
  - Throat irritation [Recovered/Resolved]
  - Stomatitis [Recovered/Resolved]
  - Paraesthesia mucosal [Unknown]
  - Throat irritation [Recovered/Resolved]
  - Mouth swelling [Not Recovered/Not Resolved]
  - Mouth swelling [Unknown]
  - Dyspepsia [Unknown]
  - Dyspepsia [Not Recovered/Not Resolved]
  - Dyspepsia [Recovered/Resolved]

NARRATIVE: CASE EVENT DATE: 20150706
